FAERS Safety Report 7542583-9 (Version None)
Quarter: 2011Q2

REPORT INFORMATION
  Report Type: 
  Country: None (occurrence: None)
  Receive Date: 20110524
  Receipt Date: 20110310
  Transmission Date: 20111010
  Serious: No
  Sender: FDA-Public Use
  Company Number: 018077

PATIENT
  Sex: Male

DRUGS (5)
  1. MULTI-VITAMINS [Concomitant]
  2. IBUPROFEN [Concomitant]
  3. CIMZIA [Suspect]
     Indication: CROHN'S DISEASE
     Dosage: (400 MG 1X/4 WEEKS, LYO SUBCUTANEOUS), (400 MG 1X/4 WEEKS SUBCUTANEOUS)
     Route: 058
     Dates: start: 20090409
  4. FISH OIL [Concomitant]
  5. SERTRALINE HYDROCHLORIDE [Concomitant]

REACTIONS (3)
  - MALAISE [None]
  - DIARRHOEA [None]
  - VOMITING [None]
